FAERS Safety Report 5516897-8 (Version None)
Quarter: 2007Q4

REPORT INFORMATION
  Report Type: 
  Country: None (occurrence: None)
  Receive Date: 20071114
  Receipt Date: 20071109
  Transmission Date: 20080405
  Serious: Yes (Hospitalization)
  Sender: FDA-Public Use
  Company Number: IT-ASTRAZENECA-2007SE04991

PATIENT
  Age: 15051 Day
  Sex: Male

DRUGS (3)
  1. MEPRAL [Suspect]
     Indication: BACK PAIN
     Route: 048
     Dates: start: 20070712, end: 20070729
  2. BENTELAN [Suspect]
     Indication: BACK PAIN
     Route: 048
     Dates: start: 20070712, end: 20070729
  3. CONTRAMAL [Suspect]
     Indication: BACK PAIN
     Route: 048
     Dates: start: 20070712, end: 20070729

REACTIONS (2)
  - ERYTHEMA [None]
  - FOLLICULITIS [None]
